FAERS Safety Report 9440455 (Version 1)
Quarter: 2013Q3

REPORT INFORMATION
  Report Type: Spontaneous
  Country: GB (occurrence: None)
  Receive Date: 20130730
  Receipt Date: 20130730
  Transmission Date: 20140515
  Serious: Yes (Hospitalization)
  Sender: FDA-Public Use
  Company Number: 2013AL000200

PATIENT
  Age: 22 Year
  Sex: Female
  Weight: 86.8 kg

DRUGS (13)
  1. MACROBID [Suspect]
     Indication: PRODUCT USED FOR UNKNOWN INDICATION
     Dates: start: 20130318, end: 20130322
  2. BLINDED [Suspect]
     Indication: MULTIPLE SCLEROSIS RELAPSE
     Route: 042
     Dates: start: 20120710, end: 20121218
  3. BLINDED [Suspect]
     Indication: MULTIPLE SCLEROSIS
     Route: 058
     Dates: start: 20120710
  4. CITALOPRAM [Concomitant]
  5. CETIRIZINE [Concomitant]
  6. ADVIL/00109201/ [Concomitant]
  7. AMBIEN [Concomitant]
  8. ZOLOFT [Concomitant]
  9. ETHINYL ESTRADIOL W/NORGESTREL [Concomitant]
  10. ACETAMINOPHEN [Concomitant]
  11. METHYLPREDNISOLONE [Concomitant]
  12. BENDADRYL/00000402/ [Concomitant]
  13. LEVETIRACETAM [Concomitant]

REACTIONS (3)
  - Gastritis [None]
  - Hypersensitivity [None]
  - Pancreatitis [None]
